FAERS Safety Report 4571564-2 (Version None)
Quarter: 2005Q1

REPORT INFORMATION
  Report Type: 
  Country: None (occurrence: None)
  Receive Date: 20050207
  Receipt Date: 20050128
  Transmission Date: 20050727
  Serious: Yes (Hospitalization)
  Sender: FDA-Public Use
  Company Number: FI-NOVOPROD-241912

PATIENT
  Age: 53 Year
  Sex: Female
  Weight: 77 kg

DRUGS (2)
  1. ACTIVELLE [Suspect]
     Indication: MENOPAUSE
     Dosage: UNK, QD
     Route: 048
     Dates: start: 20040909
  2. EMCONCOR                                /BEL/ [Concomitant]
     Indication: HYPERTENSION
     Dosage: 5 MG, QD
     Route: 048
     Dates: start: 20001001

REACTIONS (2)
  - BLOOD PRESSURE INCREASED [None]
  - DIZZINESS [None]
